FAERS Safety Report 6032045-2 (Version None)
Quarter: 2009Q1

REPORT INFORMATION
  Report Type: 
  Country: None (occurrence: None)
  Receive Date: 20090108
  Receipt Date: 20081231
  Transmission Date: 20090719
  Serious: Yes (Other)
  Sender: FDA-Public Use
  Company Number: US-JNJCH-2009000108

PATIENT
  Age: 52 Year
  Sex: Female
  Weight: 72.6 kg

DRUGS (2)
  1. VISINE-A [Suspect]
     Indication: EYE PRURITUS
     Dosage: TEXT:TWO DROPS IN EACH EYE ONCE A DAY
     Route: 047
     Dates: start: 20081230, end: 20081231
  2. MULTI-VITAMINS [Concomitant]
     Indication: VITAMIN SUPPLEMENTATION
     Dosage: TEXT:UNSPECIFIED ONCE DAILY
     Route: 065

REACTIONS (4)
  - EYE IRRITATION [None]
  - EYE SWELLING [None]
  - VISION BLURRED [None]
  - VISUAL IMPAIRMENT [None]
